FAERS Safety Report 6124291-4 (Version None)
Quarter: 2009Q1

REPORT INFORMATION
  Report Type: 
  Country: None (occurrence: None)
  Receive Date: 20090317
  Receipt Date: 20090317
  Transmission Date: 20090719
  Serious: No
  Sender: FDA-Public Use
  Company Number: None

PATIENT
  Age: 56 Year
  Sex: Male
  Weight: 68 kg

DRUGS (3)
  1. PRAZSOIN HCL [Suspect]
     Indication: NIGHTMARE
     Dosage: 1 MG HS PO
     Route: 048
     Dates: start: 20090211, end: 20090213
  2. PRAZSOIN HCL [Suspect]
     Indication: POST-TRAUMATIC STRESS DISORDER
     Dosage: 1 MG HS PO
     Route: 048
     Dates: start: 20090211, end: 20090213
  3. MIRTAZAPINE [Suspect]
     Indication: DEPRESSION
     Dosage: 45 MG HS PO
     Route: 048
     Dates: start: 20090108

REACTIONS (1)
  - PRIAPISM [None]
